FAERS Safety Report 7996927-4 (Version None)
Quarter: 2011Q4

REPORT INFORMATION
  Report Type: 
  Country: None (occurrence: None)
  Receive Date: 20111216
  Receipt Date: 20111202
  Transmission Date: 20120403
  Serious: Yes (Disabling, Other)
  Sender: FDA-Public Use
  Company Number: 2011-4410

PATIENT
  Age: 64 Year
  Sex: Female
  Weight: 60 kg

DRUGS (4)
  1. ACETAMINOPHEN [Concomitant]
  2. ATACAND [Concomitant]
  3. DYSPORT [Suspect]
     Indication: MUSCLE SPASTICITY
     Dosage: 1000 UNITS (1000 UNITS, SINGLE CYCLE), INTRAMUSCULAR
     Route: 030
     Dates: start: 20110617, end: 20110617
  4. DEXOFEN (DEXTROPROPOXYPHENE NAPSILATE) [Concomitant]

REACTIONS (6)
  - FATIGUE [None]
  - BLOOD THYROID STIMULATING HORMONE DECREASED [None]
  - ASTHENIA [None]
  - MUSCULAR WEAKNESS [None]
  - DYSPNOEA [None]
  - ELECTROCARDIOGRAM T WAVE ABNORMAL [None]
